FAERS Safety Report 14938326 (Version 1)
Quarter: 2018Q2

REPORT INFORMATION
  Report Type: Spontaneous
  Country: ZA (occurrence: ZA)
  Receive Date: 20180525
  Receipt Date: 20180525
  Transmission Date: 20180711
  Serious: Yes (Hospitalization)
  Sender: FDA-Public Use
  Company Number: ZA-SA-2018SA104965

PATIENT
  Sex: Female

DRUGS (1)
  1. MYOZYME [Suspect]
     Active Substance: ALGLUCOSIDASE ALFA
     Dosage: UNK UNK,UNK
     Route: 041

REACTIONS (7)
  - Cough [Unknown]
  - Dyspnoea [Unknown]
  - Malaise [Unknown]
  - Tachycardia [Unknown]
  - Swelling face [Unknown]
  - Peripheral coldness [Unknown]
  - Headache [Unknown]

NARRATIVE: CASE EVENT DATE: 20180330
